FAERS Safety Report 7822995-6 (Version None)
Quarter: 2011Q4

REPORT INFORMATION
  Report Type: 
  Country: None (occurrence: None)
  Receive Date: 20111018
  Receipt Date: 20110221
  Transmission Date: 20120403
  Serious: No
  Sender: FDA-Public Use
  Company Number: US-ASTRAZENECA-2011SE09865

PATIENT
  Age: 76 Year
  Sex: Female
  Weight: 74.8 kg

DRUGS (9)
  1. HYDROCHLOROTHIAZIDE [Concomitant]
  2. TENORMIN [Concomitant]
  3. VISTARIL [Concomitant]
  4. METFORMIN HCL [Concomitant]
  5. SYMBICORT [Suspect]
     Indication: CHRONIC OBSTRUCTIVE PULMONARY DISEASE
     Dosage: 160/4.5 MCG BID
     Route: 055
     Dates: start: 20090101
  6. NORVASC [Concomitant]
  7. LAVARTIS [Concomitant]
  8. PREVACID [Concomitant]
  9. ASPIRIN [Concomitant]

REACTIONS (1)
  - DRY MOUTH [None]
